FAERS Safety Report 4981034-5 (Version None)
Quarter: 2006Q2

REPORT INFORMATION
  Report Type: 
  Country: None (occurrence: None)
  Receive Date: 20060424
  Receipt Date: 20060414
  Transmission Date: 20061013
  Serious: Yes (Congenital Anomaly)
  Sender: FDA-Public Use
  Company Number: FR-ABBOTT-06P-056-0330950-00

PATIENT
  Sex: Male
  Weight: 2.4 kg

DRUGS (1)
  1. DEPAKENE [Suspect]
     Indication: DRUG EXPOSURE DURING PREGNANCY

REACTIONS (13)
  - BRAIN MALFORMATION [None]
  - CARDIOMEGALY [None]
  - CEPHALHAEMATOMA [None]
  - CONGENITAL CENTRAL NERVOUS SYSTEM ANOMALY [None]
  - CONGENITAL FOOT MALFORMATION [None]
  - CONGENITAL HAND MALFORMATION [None]
  - FACIAL DYSMORPHISM [None]
  - HAND DEFORMITY [None]
  - HYPOSPADIAS [None]
  - LIMB REDUCTION DEFECT [None]
  - MULTIPLE CONGENITAL ABNORMALITIES [None]
  - NEONATAL RESPIRATORY DEPRESSION [None]
  - SKULL MALFORMATION [None]
